FAERS Safety Report 17159051 (Version 1)
Quarter: 2019Q4

REPORT INFORMATION
  Report Type: Spontaneous
  Country: JP (occurrence: JP)
  Receive Date: 20191216
  Receipt Date: 20191216
  Transmission Date: 20200122
  Serious: Yes (Hospitalization, Other)
  Sender: FDA-Public Use
  Company Number: JP-AMGEN-JPNSP2019206788

PATIENT
  Age: 50 Year
  Sex: Male
  Weight: 88.1 kg

DRUGS (1)
  1. PARSABIV [Suspect]
     Active Substance: ETELCALCETIDE HYDROCHLORIDE
     Indication: HYPERPARATHYROIDISM SECONDARY
     Dosage: 2.5 MILLIGRAM, Q3WK (2.5 MG, Q3W)
     Route: 041

REACTIONS (1)
  - Shunt aneurysm [Recovered/Resolved]

NARRATIVE: CASE EVENT DATE: 20190716
